FAERS Safety Report 21923323 (Version 1)
Quarter: 2023Q1

REPORT INFORMATION
  Report Type: Spontaneous
  Country: IR (occurrence: IR)
  Receive Date: 20230129
  Receipt Date: 20230129
  Transmission Date: 20230418
  Serious: Yes (Death)
  Sender: FDA-Public Use
  Company Number: IR-BEH-2023154696

PATIENT
  Age: 70 Year
  Sex: Male

DRUGS (4)
  1. HUMAN IMMUNOGLOBULIN G [Suspect]
     Active Substance: HUMAN IMMUNOGLOBULIN G
     Indication: Guillain-Barre syndrome
     Dosage: UNK
     Route: 042
     Dates: start: 202004
  2. UMIFENOVIR [Concomitant]
     Active Substance: UMIFENOVIR
     Indication: COVID-19
     Route: 065
  3. LOPINAVIR [Concomitant]
     Active Substance: LOPINAVIR
     Indication: COVID-19
     Route: 065
  4. RITONAVIR [Concomitant]
     Active Substance: RITONAVIR
     Indication: COVID-19
     Route: 065

REACTIONS (1)
  - Drug ineffective [Fatal]
